FAERS Safety Report 20710153 (Version 1)
Quarter: 2022Q2

REPORT INFORMATION
  Report Type: Spontaneous
  Country: FR (occurrence: FR)
  Receive Date: 20220414
  Receipt Date: 20220414
  Transmission Date: 20220721
  Serious: Yes (Other)
  Sender: FDA-Public Use
  Company Number: FR-NOVARTISPH-NVSC2021FR152953

PATIENT
  Age: 28 Year
  Sex: Male
  Weight: 75 kg

DRUGS (41)
  1. VORICONAZOLE [Suspect]
     Active Substance: VORICONAZOLE
     Indication: Product used for unknown indication
     Dosage: UNK
     Route: 065
  2. AVIBACTAM SODIUM\CEFTAZIDIME [Suspect]
     Active Substance: AVIBACTAM SODIUM\CEFTAZIDIME
     Indication: Product used for unknown indication
     Dosage: 2G/0,5G, 3X/DAY
     Route: 065
     Dates: start: 20210504
  3. NERISONE [Concomitant]
     Active Substance: DIFLUCORTOLONE VALERATE
     Indication: Graft versus host disease
     Dosage: UNK
     Route: 003
  4. PHYTONADIONE [Concomitant]
     Active Substance: PHYTONADIONE
     Indication: Prophylaxis
     Dosage: UNK
     Route: 042
     Dates: start: 20210504
  5. FUROSEMIDE [Concomitant]
     Active Substance: FUROSEMIDE
     Indication: Hypertension
     Dosage: UNK
     Route: 042
     Dates: start: 20210514, end: 20210515
  6. DIAZEPAM [Concomitant]
     Active Substance: DIAZEPAM
     Indication: Anxiety
     Dosage: UNK
     Route: 042
     Dates: start: 20210514, end: 20210514
  7. ALBUTEROL [Concomitant]
     Active Substance: ALBUTEROL
     Indication: Dyspnoea
     Dosage: UNK
     Route: 055
     Dates: start: 20210429
  8. POTASSIUM [Concomitant]
     Active Substance: POTASSIUM
     Indication: Hypokalaemia
     Dosage: UNK
     Route: 048
     Dates: start: 20210506, end: 20210509
  9. POTASSIUM [Concomitant]
     Active Substance: POTASSIUM
     Dosage: UNK
     Route: 042
     Dates: start: 20210506, end: 20210511
  10. LOPERAMIDE [Concomitant]
     Active Substance: LOPERAMIDE
     Indication: Diarrhoea
     Dosage: UNK
     Route: 048
     Dates: start: 20210429, end: 20210511
  11. TRAMADOL [Concomitant]
     Active Substance: TRAMADOL
     Indication: Pain
     Dosage: UNK UNK, PRN
     Route: 048
     Dates: end: 20210511
  12. TRAMADOL [Concomitant]
     Active Substance: TRAMADOL
     Dosage: UNK UNK, PRN
     Route: 042
     Dates: start: 20210511, end: 20210514
  13. PHLOROGLUCINOL [Concomitant]
     Active Substance: PHLOROGLUCINOL
     Indication: Abdominal pain upper
     Dosage: UNK
     Route: 048
     Dates: end: 20210511
  14. PHLOROGLUCINOL [Concomitant]
     Active Substance: PHLOROGLUCINOL
     Dosage: UNK UNK, PRN
     Route: 042
     Dates: start: 20210512
  15. LANSOPRAZOLE [Concomitant]
     Active Substance: LANSOPRAZOLE
     Indication: Gastrooesophageal reflux disease
     Dosage: UNK
     Route: 048
     Dates: end: 20210511
  16. BUDESONIDE [Concomitant]
     Active Substance: BUDESONIDE
     Indication: Dyspnoea
     Dosage: UNK
     Route: 055
     Dates: end: 20210511
  17. BACTRIM [Concomitant]
     Active Substance: SULFAMETHOXAZOLE\TRIMETHOPRIM
     Indication: Infection prophylaxis
     Dosage: UNK
     Route: 042
     Dates: start: 20210512
  18. TRIMEBUTINE [Concomitant]
     Active Substance: TRIMEBUTINE
     Indication: Diarrhoea
     Dosage: UNK
     Route: 048
     Dates: start: 20210429, end: 20210511
  19. TRIMEBUTINE [Concomitant]
     Active Substance: TRIMEBUTINE
     Indication: Intestinal transit time abnormal
     Dosage: UNK UNK, PRN
     Route: 042
     Dates: start: 20210511
  20. CHOLECALCIFEROL [Concomitant]
     Active Substance: CHOLECALCIFEROL
     Indication: Calcium deficiency
     Dosage: UNK
     Route: 048
     Dates: start: 20210512, end: 20210512
  21. FOSFOMYCIN [Concomitant]
     Active Substance: FOSFOMYCIN
     Indication: Urinary tract infection
     Dosage: UNK
     Route: 048
     Dates: start: 20210505
  22. VALACYCLOVIR HYDROCHLORIDE [Concomitant]
     Active Substance: VALACYCLOVIR HYDROCHLORIDE
     Indication: Infection prophylaxis
     Dosage: UNK
     Route: 048
     Dates: end: 20210511
  23. METHYLPREDNISOLONE [Concomitant]
     Active Substance: METHYLPREDNISOLONE
     Indication: Graft versus host disease
     Dosage: UNK
     Route: 042
     Dates: start: 20210430, end: 20210515
  24. AMPHOTERICIN B [Concomitant]
     Active Substance: AMPHOTERICIN B
     Indication: Aspergillus infection
     Dosage: UNK
     Route: 042
     Dates: start: 20210501, end: 20210511
  25. PANTOPRAZOLE [Concomitant]
     Active Substance: PANTOPRAZOLE
     Indication: Gastrooesophageal reflux disease
     Dosage: UNK
     Route: 042
     Dates: start: 20210511
  26. INNOVAIR [Concomitant]
     Active Substance: BECLOMETHASONE DIPROPIONATE\FORMOTEROL
     Indication: Dyspnoea
     Dosage: UNK
     Route: 055
     Dates: start: 20210511
  27. ISAVUCONAZOLE [Concomitant]
     Active Substance: ISAVUCONAZOLE
     Indication: Aspergillus infection
     Dosage: UNK
     Route: 042
     Dates: start: 20210501, end: 20210514
  28. LETERMOVIR [Concomitant]
     Active Substance: LETERMOVIR
     Indication: Infection prophylaxis
     Dosage: UNK
     Route: 048
  29. CYCLOSPORINE [Concomitant]
     Active Substance: CYCLOSPORINE
     Indication: Prophylaxis
     Dosage: UNK
     Route: 042
  30. LEUCOVORIN CALCIUM [Concomitant]
     Active Substance: LEUCOVORIN CALCIUM
     Indication: Folate deficiency
     Dosage: UNK
     Route: 065
     Dates: start: 20210515, end: 20210515
  31. LEUCOVORIN CALCIUM [Concomitant]
     Active Substance: LEUCOVORIN CALCIUM
     Dosage: UNK
     Route: 048
     Dates: start: 20210501, end: 20210508
  32. MAGNESIUM PIDOLATE [Concomitant]
     Active Substance: MAGNESIUM PIDOLATE
     Indication: Magnesium deficiency
     Dosage: UNK
     Route: 048
     Dates: start: 20210501, end: 20210509
  33. CASPOFUNGIN [Concomitant]
     Active Substance: CASPOFUNGIN
     Indication: Aspergillus infection
     Dosage: UNK
     Route: 042
     Dates: start: 20210514
  34. ACYCLOVIR [Concomitant]
     Active Substance: ACYCLOVIR
     Indication: Herpes simplex
     Dosage: UNK
     Route: 042
     Dates: start: 20210511
  35. ENOXAPARIN SODIUM [Concomitant]
     Active Substance: ENOXAPARIN SODIUM
     Indication: Thrombosis prophylaxis
     Dosage: UNK
     Route: 058
     Dates: start: 20210430, end: 20210515
  36. OXYGEN [Concomitant]
     Active Substance: OXYGEN
     Indication: Dyspnoea
     Dosage: UNK
     Route: 055
     Dates: start: 20210429, end: 20210519
  37. TAUROLIDINE [Concomitant]
     Active Substance: TAUROLIDINE
     Indication: Product used for unknown indication
     Dosage: UNK
     Route: 042
     Dates: start: 20210503
  38. METOCLOPRAMIDE [Concomitant]
     Active Substance: METOCLOPRAMIDE
     Indication: Nausea
     Dosage: UNK
     Route: 042
  39. IMATINIB [Concomitant]
     Active Substance: IMATINIB
     Indication: Acute lymphocytic leukaemia
     Dosage: UNK
     Route: 048
     Dates: start: 20210430
  40. PENICILLIN V [Concomitant]
     Active Substance: PENICILLIN V
     Indication: Immunosuppression
     Dosage: UNK
     Route: 048
     Dates: start: 20210430
  41. BACTRIM [Concomitant]
     Active Substance: SULFAMETHOXAZOLE\TRIMETHOPRIM
     Indication: Infection prophylaxis
     Dosage: UNK
     Route: 048
     Dates: end: 20210511

REACTIONS (1)
  - Hepatic cytolysis [Not Recovered/Not Resolved]

NARRATIVE: CASE EVENT DATE: 20210521
